FAERS Safety Report 5975390-9 (Version None)
Quarter: 2008Q4

REPORT INFORMATION
  Report Type: 
  Country: None (occurrence: None)
  Receive Date: 20081202
  Receipt Date: 20080125
  Transmission Date: 20090506
  Serious: Yes (Hospitalization)
  Sender: FDA-Public Use
  Company Number: US-AMGEN-QUU259507

PATIENT
  Sex: Female
  Weight: 114.4 kg

DRUGS (5)
  1. ENBREL [Suspect]
     Indication: RHEUMATOID ARTHRITIS
     Route: 058
     Dates: start: 20010101
  2. LEVOTHYROXINE SODIUM [Concomitant]
  3. PROTONIX [Concomitant]
  4. PAXIL [Concomitant]
  5. PERCOCET [Concomitant]

REACTIONS (2)
  - INJECTION SITE PAIN [None]
  - STAPHYLOCOCCAL INFECTION [None]
